FAERS Safety Report 4589719-X (Version None)
Quarter: 2005Q1

REPORT INFORMATION
  Report Type: 
  Country: None (occurrence: None)
  Receive Date: 20050217
  Receipt Date: 20050214
  Transmission Date: 20050727
  Serious: Yes (Hospitalization)
  Sender: FDA-Public Use
  Company Number: 21-732-2005-M0002

PATIENT
  Age: 84 Year
  Sex: Male
  Weight: 68.0396 kg

DRUGS (13)
  1. VANTAS [Suspect]
     Indication: PROSTATE CANCER
     Dosage: 50 MG, 1/YEAR, 0.57IMPLANT
     Dates: start: 20050209
  2. ALLOPURINOL [Concomitant]
  3. ZANTAC [Concomitant]
  4. CLINDEX [Concomitant]
  5. MEGACE [Concomitant]
  6. LIBRAX [Concomitant]
  7. PERPHENOZINE [Concomitant]
  8. AMITRIPTYLINE [Concomitant]
  9. CELEXA [Concomitant]
  10. ASPIRIN [Concomitant]
  11. SENEMET [Concomitant]
  12. TRICYOLAM [Concomitant]
  13. CHLRAD/CLINDI [Concomitant]

REACTIONS (5)
  - CHEST PAIN [None]
  - DELIRIUM [None]
  - IMPLANT SITE PAIN [None]
  - PAIN IN EXTREMITY [None]
  - POSTURE ABNORMAL [None]
